FAERS Safety Report 9919597 (Version 1)
Quarter: 2014Q1

REPORT INFORMATION
  Report Type: Spontaneous
  Country: PL (occurrence: PL)
  Receive Date: 20140224
  Receipt Date: 20140224
  Transmission Date: 20141002
  Serious: Yes (Other)
  Sender: FDA-Public Use
  Company Number: PHHY2014PL019529

PATIENT
  Sex: Female

DRUGS (7)
  1. METOPROLOL [Suspect]
     Route: 064
  2. SOTALOL [Suspect]
     Route: 064
  3. BENZODIAZEPINES [Suspect]
     Route: 064
  4. DIAZEPAM [Suspect]
     Route: 064
  5. AMIODARONE [Suspect]
     Route: 064
  6. MIDANIUM [Suspect]
     Route: 064
  7. ISOPROTERENOL HCL INJ USP [Suspect]
     Route: 064

REACTIONS (2)
  - Premature baby [Unknown]
  - Foetal exposure during pregnancy [Unknown]
